FAERS Safety Report 11428523 (Version 1)
Quarter: 2015Q3

REPORT INFORMATION
  Report Type: Spontaneous
  Country: US (occurrence: US)
  Receive Date: 20150828
  Receipt Date: 20150828
  Transmission Date: 20151125
  Serious: No
  Sender: FDA-Public Use
  Company Number: US-ROCHE-1237901

PATIENT
  Sex: Male

DRUGS (3)
  1. RIBAVIRIN. [Suspect]
     Active Substance: RIBAVIRIN
     Indication: CHRONIC HEPATITIS C
     Dosage: ALTERNATING DAYS OF 1200MG AND 1000MG
     Route: 048
     Dates: start: 20120820
  2. PEGASYS [Suspect]
     Active Substance: PEGINTERFERON ALFA-2A
     Indication: CHRONIC HEPATITIS C
     Route: 058
     Dates: start: 20120820
  3. RIBAVIRIN. [Suspect]
     Active Substance: RIBAVIRIN
     Dosage: ALTERNATING DAYS OF 1200MG AND 1000MG
     Route: 048

REACTIONS (1)
  - Liver disorder [Unknown]
